FAERS Safety Report 7435847-0 (Version None)
Quarter: 2011Q2

REPORT INFORMATION
  Report Type: 
  Country: None (occurrence: None)
  Receive Date: 20110425
  Receipt Date: 20110419
  Transmission Date: 20111010
  Serious: Yes (Death)
  Sender: FDA-Public Use
  Company Number: US-PFIZER INC-2011045890

PATIENT
  Sex: Male

DRUGS (2)
  1. VIAGRA [Suspect]
     Dosage: UNK
  2. ATACAND [Interacting]
     Dosage: UNK

REACTIONS (3)
  - DEATH [None]
  - DRUG INTERACTION [None]
  - FATIGUE [None]
